FAERS Safety Report 24339805 (Version 2)
Quarter: 2024Q4

REPORT INFORMATION
  Report Type: Report from Study
  Country: US (occurrence: US)
  Receive Date: 20240919
  Receipt Date: 20241126
  Transmission Date: 20250115
  Serious: Yes (Other)
  Sender: NOVARTIS
  Company Number: US-002147023-NVSC2024US174206

PATIENT
  Sex: Male

DRUGS (1)
  1. KESIMPTA [Suspect]
     Active Substance: OFATUMUMAB
     Indication: Product used for unknown indication
     Dosage: 20 MG, QMO
     Route: 065

REACTIONS (10)
  - Multiple sclerosis [Unknown]
  - Cerebral disorder [Unknown]
  - Cognitive disorder [Unknown]
  - Pain in extremity [Unknown]
  - Somnolence [Unknown]
  - Hypoaesthesia [Unknown]
  - Back pain [Unknown]
  - Feeling abnormal [Unknown]
  - Stress [Unknown]
  - Burning sensation [Unknown]
